FAERS Safety Report 9564687 (Version 1)
Quarter: 2013Q3

REPORT INFORMATION
  Report Type: Spontaneous
  Country: US (occurrence: US)
  Receive Date: 20130930
  Receipt Date: 20130930
  Transmission Date: 20140515
  Serious: No
  Sender: FDA-Public Use
  Company Number: US-PFIZER INC-2013277441

PATIENT
  Age: 70 Year
  Sex: Female
  Weight: 55.33 kg

DRUGS (6)
  1. LYRICA [Suspect]
     Indication: FACIAL NERVE DISORDER
     Dosage: 50 MG, 1X/DAY
     Route: 048
     Dates: start: 20130920
  2. LYRICA [Suspect]
     Indication: SENSITIVITY OF TEETH
  3. LYRICA [Suspect]
     Indication: HEADACHE
  4. LYRICA [Suspect]
     Indication: FACIAL PAIN
  5. OXYCODONE [Concomitant]
     Indication: ABDOMINAL DISCOMFORT
     Dosage: UNK, AS NEEDED
  6. OXYCODONE [Concomitant]
     Indication: ABDOMINAL PAIN UPPER

REACTIONS (8)
  - Off label use [Unknown]
  - Tremor [Not Recovered/Not Resolved]
  - Dyskinesia [Not Recovered/Not Resolved]
  - Eye irritation [Recovered/Resolved]
  - Rash [Unknown]
  - Foreign body sensation in eyes [Unknown]
  - Dry eye [Unknown]
  - Ocular discomfort [Unknown]
